FAERS Safety Report 9162089 (Version 2)
Quarter: 2014Q2

REPORT INFORMATION
  Report Type: Spontaneous
  Country: US (occurrence: None)
  Receive Date: 20130116
  Receipt Date: 20140611
  Transmission Date: 20141212
  Serious: Yes (Hospitalization, Other)
  Sender: FDA-Public Use
  Company Number: 2250051-2013-00013

PATIENT
  Age: 1 Year
  Sex: Female
  Weight: 2.9 kg

DRUGS (1)
  1. RHOGAM ULTRA-FILTERED PLUS [Suspect]
     Indication: PRENATAL CARE
     Route: 030
     Dates: start: 20121105, end: 20121105

REACTIONS (5)
  - Maternal drugs affecting foetus [None]
  - Coombs direct test positive [None]
  - Blood lactate dehydrogenase increased [None]
  - Blood bilirubin increased [None]
  - Haemoglobin decreased [None]
